FAERS Safety Report 22224341 (Version 2)
Quarter: 2023Q2

REPORT INFORMATION
  Report Type: Spontaneous
  Country: CN (occurrence: CN)
  Receive Date: 20230418
  Receipt Date: 20230428
  Transmission Date: 20230721
  Serious: Yes (Death)
  Sender: FDA-Public Use
  Company Number: CN-PFIZER INC-PV202300069280

PATIENT
  Age: 57 Year
  Sex: Male
  Weight: 62.5 kg

DRUGS (8)
  1. CYTARABINE [Suspect]
     Active Substance: CYTARABINE
     Indication: Prophylaxis against graft versus host disease
     Dosage: 2600 MG, 1X/DAY
     Route: 041
     Dates: start: 20230402, end: 20230406
  2. BENDAMUSTINE HYDROCHLORIDE [Suspect]
     Active Substance: BENDAMUSTINE HYDROCHLORIDE
     Indication: Prophylaxis against graft versus host disease
     Dosage: 200 MG, 1X/DAY
     Route: 041
     Dates: start: 20230402, end: 20230402
  3. THYMOGLOBULINE [Suspect]
     Active Substance: LAPINE T-LYMPHOCYTE IMMUNE GLOBULIN
     Indication: Prophylaxis against graft versus host disease
     Dosage: 125 MG, ONCE EVERY 2 DAYS
     Route: 041
     Dates: start: 20230407, end: 20230408
  4. LEVETIRACETAM [Suspect]
     Active Substance: LEVETIRACETAM
     Indication: Prophylaxis against graft versus host disease
     Dosage: 1000 MG, 2X/DAY
     Route: 048
     Dates: start: 20230405, end: 20230409
  5. CYCLOPHOSPHAMIDE [Suspect]
     Active Substance: CYCLOPHOSPHAMIDE
     Indication: Prophylaxis against graft versus host disease
     Dosage: 900 MG, 1X/DAY
     Route: 041
     Dates: start: 20230404, end: 20230405
  6. DECITABINE [Suspect]
     Active Substance: DECITABINE
     Indication: Prophylaxis against graft versus host disease
     Dosage: 50 MG, 1X/DAY
     Route: 041
     Dates: start: 20230402, end: 20230406
  7. BUSULFEX [Suspect]
     Active Substance: BUSULFAN
     Indication: Prophylaxis against graft versus host disease
     Dosage: 60 MG, 1X/DAY
     Route: 041
     Dates: start: 20230406, end: 20230408
  8. FLUDARABINE PHOSPHATE [Suspect]
     Active Substance: FLUDARABINE PHOSPHATE
     Indication: Prophylaxis against graft versus host disease
     Dosage: 50 MG, 1X/DAY
     Route: 041
     Dates: start: 20230402, end: 20230406

REACTIONS (5)
  - Cardiac arrest [Fatal]
  - Blood pressure decreased [Fatal]
  - Serum sickness [Fatal]
  - Respiratory arrest [Fatal]
  - Off label use [Unknown]

NARRATIVE: CASE EVENT DATE: 20230407
